FAERS Safety Report 8850911 (Version 1)
Quarter: 2012Q4

REPORT INFORMATION
  Report Type: 
  Country: US (occurrence: US)
  Receive Date: 20121019
  Receipt Date: 20121019
  Transmission Date: 20130627
  Serious: No
  Sender: FDA-Public Use
  Company Number: US-PFIZER INC-2012261156

PATIENT
  Age: 74 Year
  Sex: Female
  Weight: 87.98 kg

DRUGS (4)
  1. LYRICA [Suspect]
     Indication: HERPES ZOSTER
     Dosage: UNK mg, UNK
     Dates: start: 20120624, end: 2012
  2. LYRICA [Suspect]
     Dosage: 50 mg, UNK
     Dates: start: 2012
  3. LYRICA [Suspect]
     Dosage: 75 mg, 2x/day
     Dates: start: 2012
  4. LORCET [Suspect]
     Indication: PAIN
     Dosage: UNK

REACTIONS (1)
  - Weight increased [Unknown]
